FAERS Safety Report 16001370 (Version 4)
Quarter: 2019Q2

REPORT INFORMATION
  Report Type: Spontaneous
  Country: US (occurrence: US)
  Receive Date: 20190224
  Receipt Date: 20190407
  Transmission Date: 20190711
  Serious: Yes (Other)
  Sender: FDA-Public Use
  Company Number: US-TEVA-2019-US-995232

PATIENT
  Age: 62 Year
  Sex: Male

DRUGS (2)
  1. COREG [Concomitant]
     Active Substance: CARVEDILOL
     Route: 065
  2. AJOVY [Suspect]
     Active Substance: FREMANEZUMAB-VFRM
     Indication: MIGRAINE PROPHYLAXIS
     Route: 065
     Dates: start: 20181113

REACTIONS (7)
  - Ventricular tachycardia [Unknown]
  - Cardiac failure [Not Recovered/Not Resolved]
  - Ventricular extrasystoles [Unknown]
  - Cardiac disorder [Unknown]
  - Extrasystoles [Recovered/Resolved]
  - Pelvic pain [Not Recovered/Not Resolved]
  - Muscle spasms [Unknown]

NARRATIVE: CASE EVENT DATE: 20181120
